FAERS Safety Report 8850382 (Version 1)
Quarter: 2012Q4

REPORT INFORMATION
  Report Type: 
  Country: FR (occurrence: FR)
  Receive Date: 20121019
  Receipt Date: 20121019
  Transmission Date: 20130627
  Serious: Yes (Hospitalization)
  Sender: FDA-Public Use
  Company Number: FR-B.I. PHARMACEUTICALS,INC./RIDGEFIELD-2012-FF-01467FF

PATIENT
  Sex: Female

DRUGS (2)
  1. PRADAXA [Suspect]
     Indication: ATRIAL FIBRILLATION
     Dosage: 220 mg
     Route: 048
     Dates: start: 20120604, end: 20120618
  2. SIMVASTATINE [Suspect]
     Dosage: 20 mg
     Route: 048
     Dates: end: 20120618

REACTIONS (10)
  - Lung disorder [Recovered/Resolved]
  - Dyspnoea [None]
  - Cough [None]
  - Pyrexia [None]
  - Hilar lymphadenopathy [None]
  - Lymphadenopathy mediastinal [None]
  - Constipation [None]
  - Hypoxia [None]
  - Inflammation [None]
  - Pulmonary sarcoidosis [None]
